FAERS Safety Report 4431546-8 (Version None)
Quarter: 2004Q3

REPORT INFORMATION
  Report Type: 
  Country: None (occurrence: None)
  Receive Date: 20040726
  Receipt Date: 20040406
  Transmission Date: 20050211
  Serious: No
  Sender: FDA-Public Use
  Company Number: USA040464105

PATIENT
  Age: 67 Year
  Sex: Female
  Weight: 50 kg

DRUGS (10)
  1. FORTEO [Suspect]
     Indication: OSTEOPOROSIS
     Dosage: 20 UG/1 DAY
     Dates: start: 20040207
  2. LOTENSIN [Concomitant]
  3. ASPIRIN [Concomitant]
  4. LANOXIN [Concomitant]
  5. CALCIUM CARBONATE [Concomitant]
  6. QVAR (BECLOMETASONE DIPROPIONATE) [Concomitant]
  7. ATROVENT [Concomitant]
  8. GUAIFENESIN [Concomitant]
  9. PULMICORT [Concomitant]
  10. SINGULAIR [Concomitant]

REACTIONS (2)
  - MUSCLE CRAMP [None]
  - SLEEP DISORDER [None]
